FAERS Safety Report 10137996 (Version 2)
Quarter: 2014Q2

REPORT INFORMATION
  Report Type: Spontaneous
  Country: US (occurrence: US)
  Receive Date: 20140429
  Receipt Date: 20140515
  Transmission Date: 20141212
  Serious: Yes (Disabling, Other)
  Sender: FDA-Public Use
  Company Number: US-JNJFOC-20140417180

PATIENT
  Age: 71 Year
  Sex: Female
  Weight: 71.67 kg

DRUGS (6)
  1. INVOKANA [Suspect]
     Indication: TYPE 2 DIABETES MELLITUS
     Route: 048
     Dates: start: 20140113, end: 20140422
  2. NOVOLOG 70/30 INSULIN, 100 UNITS [Suspect]
     Indication: TYPE 2 DIABETES MELLITUS
     Route: 058
     Dates: start: 20140113, end: 20140509
  3. PROLIA [Suspect]
     Indication: OSTEOPOROSIS
     Route: 030
     Dates: start: 20140113
  4. ZYRTEC [Concomitant]
  5. PRAVASTATIN [Concomitant]
     Indication: LIPIDS ABNORMAL
     Dates: start: 20100812
  6. LISINOPRIL [Concomitant]
     Indication: HYPERTENSION
     Dates: start: 20120814

REACTIONS (3)
  - Eye disorder [Not Recovered/Not Resolved]
  - Extraocular muscle disorder [Not Recovered/Not Resolved]
  - Diplopia [Not Recovered/Not Resolved]
